FAERS Safety Report 20106689 (Version 1)
Quarter: 2021Q4

REPORT INFORMATION
  Report Type: Spontaneous
  Country: JP (occurrence: JP)
  Receive Date: 20211124
  Receipt Date: 20211124
  Transmission Date: 20220303
  Serious: Yes (Other)
  Sender: FDA-Public Use
  Company Number: JP-SA-2021SA387508

PATIENT

DRUGS (4)
  1. DOCETAXEL [Suspect]
     Active Substance: DOCETAXEL
     Indication: Oropharyngeal cancer
     Dosage: 60 MG/M2, Q4W
     Route: 013
  2. NEDAPLATIN [Suspect]
     Active Substance: NEDAPLATIN
     Indication: Oropharyngeal cancer
     Dosage: 80 MG/M2, Q4W
     Route: 013
  3. HEPARIN [Concomitant]
     Active Substance: HEPARIN SODIUM
     Indication: Anticoagulant therapy
     Dosage: 700 U PER 10 KG BODY WEIGHT
  4. HEPARIN [Concomitant]
     Active Substance: HEPARIN SODIUM
     Dosage: 500 U, QH DURING THE PROCEDURE
     Route: 042

REACTIONS (1)
  - Osteonecrosis [Unknown]
